FAERS Safety Report 16983595 (Version 1)
Quarter: 2019Q4

REPORT INFORMATION
  Report Type: Spontaneous
  Country: GB (occurrence: GB)
  Receive Date: 20191101
  Receipt Date: 20191101
  Transmission Date: 20200122
  Serious: Yes (Life-Threatening, Hospitalization)
  Sender: FDA-Public Use
  Company Number: GB-MYLANLABS-2019M1103581

PATIENT
  Age: 73 Year
  Sex: Female
  Weight: 72 kg

DRUGS (23)
  1. TRAMADOL. [Suspect]
     Active Substance: TRAMADOL
     Indication: ABDOMINAL PAIN LOWER
     Dosage: 100 MILLIGRAM, PRN
     Route: 048
  2. FOLIC ACID. [Concomitant]
     Active Substance: FOLIC ACID
     Dosage: 5 MILLIGRAM, QD
  3. CHLORDIAZEPOXIDE. [Concomitant]
     Active Substance: CHLORDIAZEPOXIDE
     Dosage: AT NIGHT
  4. ONDANSETRON HYDROCHLORIDE. [Suspect]
     Active Substance: ONDANSETRON HYDROCHLORIDE
     Indication: PROCEDURAL NAUSEA
     Dosage: 4 MILLIGRAM
     Route: 042
     Dates: start: 20180725
  5. SUGAMMADEX [Suspect]
     Active Substance: SUGAMMADEX
     Indication: PRODUCT USED FOR UNKNOWN INDICATION
     Dosage: 150 MILLIGRAM
     Dates: start: 20180725
  6. SIMVASTATIN. [Concomitant]
     Active Substance: SIMVASTATIN
     Dosage: AT NIGHT
  7. LEVOTHYROXINE. [Concomitant]
     Active Substance: LEVOTHYROXINE
     Dosage: 75 MILLIGRAM, QD
  8. MORPHINE [Suspect]
     Active Substance: MORPHINE
     Indication: PRODUCT USED FOR UNKNOWN INDICATION
     Dosage: 3 MILLIGRAM
     Dates: start: 20180725
  9. PIZOTIFEN [Suspect]
     Active Substance: PIZOTYLINE
     Indication: MIGRAINE
     Dosage: AT NIGHT
     Route: 048
  10. RAMIPRIL. [Concomitant]
     Active Substance: RAMIPRIL
     Dosage: 10 MILLIGRAM, QD
  11. AZITHROMYCIN ANHYDROUS. [Concomitant]
     Active Substance: AZITHROMYCIN ANHYDROUS
     Dosage: MONDAY, WEDNESDAY, FRIDAY
  12. SUMATRIPTAN. [Suspect]
     Active Substance: SUMATRIPTAN
     Indication: MIGRAINE
     Dosage: 100 MILLIGRAM, PRN
     Route: 048
  13. DEXAMETHASONE. [Suspect]
     Active Substance: DEXAMETHASONE
     Indication: PRODUCT USED FOR UNKNOWN INDICATION
     Dosage: 6.6 MILLIGRAM
     Dates: start: 20180725
  14. OMEPRAZOLE. [Concomitant]
     Active Substance: OMEPRAZOLE
     Dosage: 20 MILLIGRAM, QD
  15. ROCURONIUM [Suspect]
     Active Substance: ROCURONIUM BROMIDE
     Indication: INDUCTION OF ANAESTHESIA
     Dosage: 40 MILLIGRAM
     Dates: start: 20180725
  16. METHYLTHIONINIUM CHLORIDE [Suspect]
     Active Substance: METHYLENE BLUE
     Indication: PARATHYROIDECTOMY
     Dosage: 350 MILLIGRAM
     Route: 042
     Dates: start: 20180725, end: 20180725
  17. ATENOLOL. [Concomitant]
     Active Substance: ATENOLOL
     Dosage: 100 MILLIGRAM, QD
  18. DOXAZOSIN [Concomitant]
     Active Substance: DOXAZOSIN MESYLATE
     Dosage: 4 MILLIGRAM, QD
  19. REMIFENTANIL HYDROCHLORIDE. [Suspect]
     Active Substance: REMIFENTANIL HYDROCHLORIDE
     Indication: MAINTENANCE OF ANAESTHESIA
     Dosage: 2 MILLIGRAM
     Route: 042
     Dates: start: 20180725
  20. PROPOFOL. [Suspect]
     Active Substance: PROPOFOL
     Indication: INDUCTION OF ANAESTHESIA
     Dosage: 210 MILLIGRAM
     Dates: start: 20180725
  21. FELODIPINE. [Concomitant]
     Active Substance: FELODIPINE
     Dosage: 10 MILLIGRAM, QD
  22. SERTRALINE [Suspect]
     Active Substance: SERTRALINE HYDROCHLORIDE
     Indication: DEPRESSION
     Dosage: 200 MILLIGRAM, QD
     Route: 048
  23. FENTANYL. [Suspect]
     Active Substance: FENTANYL
     Indication: ANAESTHETIC PREMEDICATION
     Dosage: 100 MICROGRAM
     Route: 042
     Dates: start: 20180725

REACTIONS (8)
  - Confusional state [Unknown]
  - Hyperreflexia [Unknown]
  - Paraesthesia [Unknown]
  - Body temperature increased [Unknown]
  - Clonus [Unknown]
  - Serotonin syndrome [Recovering/Resolving]
  - Dyskinesia [Unknown]
  - Muscle twitching [Unknown]

NARRATIVE: CASE EVENT DATE: 20180725
